FAERS Safety Report 6564724-2 (Version None)
Quarter: 2010Q1

REPORT INFORMATION
  Report Type: 
  Country: None (occurrence: None)
  Receive Date: 20100201
  Receipt Date: 20100127
  Transmission Date: 20100710
  Serious: Yes (Death, Hospitalization)
  Sender: FDA-Public Use
  Company Number: JP-ASTRAZENECA-2009SE21610

PATIENT

DRUGS (3)
  1. BLOPRESS [Suspect]
     Indication: HYPERTENSION
     Route: 048
     Dates: end: 20091001
  2. TAKEPRON [Suspect]
     Route: 065
  3. PLAVIX [Suspect]
     Route: 048

REACTIONS (2)
  - CEREBRAL INFARCTION [None]
  - INTERSTITIAL LUNG DISEASE [None]
